FAERS Safety Report 15363580 (Version 4)
Quarter: 2020Q1

REPORT INFORMATION
  Report Type: Report from Study
  Country: US (occurrence: US)
  Receive Date: 20180907
  Receipt Date: 20200225
  Transmission Date: 20200409
  Serious: Yes (Other)
  Sender: FDA-Public Use
  Company Number: PHEH2018US037468

PATIENT
  Sex: Male

DRUGS (1)
  1. ENTRESTO [Suspect]
     Active Substance: SACUBITRIL\VALSARTAN
     Indication: CARDIAC FAILURE
     Dosage: UNK, QD
     Route: 048

REACTIONS (5)
  - Dyspnoea [Unknown]
  - Inappropriate schedule of product administration [Unknown]
  - Syncope [Unknown]
  - Dizziness [Unknown]
  - Loss of consciousness [Unknown]
